FAERS Safety Report 10688515 (Version 1)
Quarter: 2015Q1

REPORT INFORMATION
  Report Type: Spontaneous
  Country: US (occurrence: US)
  Receive Date: 20150102
  Receipt Date: 20150102
  Transmission Date: 20150720
  Serious: No
  Sender: FDA-Public Use
  Company Number: US-009507513-1412USA010152

PATIENT
  Weight: 58.5 kg

DRUGS (2)
  1. NEXPLANON [Suspect]
     Active Substance: ETONOGESTREL
     Dosage: 1 ROD EVERY THREE YEARS
     Route: 059
     Dates: start: 20141216, end: 20141216
  2. NEXPLANON [Suspect]
     Active Substance: ETONOGESTREL
     Dosage: 1 ROD EVERY THREE YEARS
     Route: 059
     Dates: start: 20141216

REACTIONS (4)
  - Device deployment issue [Recovered/Resolved]
  - Product contamination with body fluid [Unknown]
  - Device difficult to use [Recovered/Resolved]
  - No adverse event [Unknown]

NARRATIVE: CASE EVENT DATE: 20141216
